FAERS Safety Report 25489054 (Version 1)
Quarter: 2025Q2

REPORT INFORMATION
  Report Type: Report from Study
  Country: US (occurrence: US)
  Receive Date: 20250627
  Receipt Date: 20250627
  Transmission Date: 20250716
  Serious: Yes (Life-Threatening, Hospitalization, Other)
  Sender: ARGENX BVBA
  Company Number: US-ARGENX-2025-ARGX-US008226

PATIENT

DRUGS (3)
  1. EFGARTIGIMOD ALFA-FCAB [Suspect]
     Active Substance: EFGARTIGIMOD ALFA-FCAB
     Indication: Myasthenia gravis
     Route: 042
  2. EFGARTIGIMOD ALFA-FCAB [Suspect]
     Active Substance: EFGARTIGIMOD ALFA-FCAB
     Route: 042
     Dates: start: 20250526, end: 20250616
  3. VYVGART HYTRULO [Suspect]
     Active Substance: EFGARTIGIMOD ALFA\HYALURONIDASE-QVFC
     Indication: Myasthenia gravis
     Route: 058
     Dates: start: 20240821

REACTIONS (2)
  - Myasthenia gravis crisis [Recovered/Resolved]
  - Drug ineffective [Recovered/Resolved]
